FAERS Safety Report 25464088 (Version 1)
Quarter: 2025Q2

REPORT INFORMATION
  Report Type: Spontaneous
  Country: NL (occurrence: NL)
  Receive Date: 20250621
  Receipt Date: 20250621
  Transmission Date: 20250716
  Serious: Yes (Other)
  Sender: ALEXION PHARMACEUTICALS
  Company Number: None

PATIENT
  Age: 72 Year
  Weight: 80 kg

DRUGS (1)
  1. DAPAGLIFLOZIN [Suspect]
     Active Substance: DAPAGLIFLOZIN
     Indication: Renal impairment

REACTIONS (4)
  - Nephrolithiasis [Not Recovered/Not Resolved]
  - Nocturia [Recovering/Resolving]
  - Constipation [Recovering/Resolving]
  - Urine analysis abnormal [Recovering/Resolving]
